FAERS Safety Report 18447488 (Version 2)
Quarter: 2020Q4

REPORT INFORMATION
  Report Type: Report from Study
  Country: None (occurrence: US)
  Receive Date: 20201101
  Receipt Date: 20201204
  Transmission Date: 20210114
  Serious: Yes (Hospitalization, Other)
  Sender: FDA-Public Use
  Company Number: US-ABBVIE-20K-163-3630173-00

PATIENT
  Age: 77 Year
  Sex: Female
  Weight: 95.34 kg

DRUGS (1)
  1. RINVOQ [Suspect]
     Active Substance: UPADACITINIB
     Indication: RHEUMATOID ARTHRITIS
     Route: 048
     Dates: start: 202006

REACTIONS (4)
  - Pulmonary thrombosis [Recovering/Resolving]
  - Dyspnoea [Recovering/Resolving]
  - Peripheral swelling [Not Recovered/Not Resolved]
  - Pleuritic pain [Recovering/Resolving]

NARRATIVE: CASE EVENT DATE: 20201013
